FAERS Safety Report 6599054-6 (Version None)
Quarter: 2010Q1

REPORT INFORMATION
  Report Type: 
  Country: None (occurrence: None)
  Receive Date: 20100224
  Receipt Date: 20090728
  Transmission Date: 20100710
  Serious: No
  Sender: FDA-Public Use
  Company Number: US-BRISTOL-MYERS SQUIBB COMPANY-14720809

PATIENT
  Age: 84 Year
  Sex: Female

DRUGS (4)
  1. GLUCOPHAGE [Suspect]
     Route: 048
  2. HUMULIN INSULIN [Suspect]
     Indication: DIABETES MELLITUS
     Dosage: 1 DF = 70/30 (UNITS NOT MENTIONED)
     Dates: start: 20090601
  3. METHIMAZOLE [Concomitant]
  4. AMLODIPINE [Concomitant]

REACTIONS (1)
  - WEIGHT INCREASED [None]
